FAERS Safety Report 5679402-1 (Version None)
Quarter: 2008Q1

REPORT INFORMATION
  Report Type: 
  Country: None (occurrence: None)
  Receive Date: 20080325
  Receipt Date: 20080314
  Transmission Date: 20080703
  Serious: Yes (Hospitalization, Other)
  Sender: FDA-Public Use
  Company Number: FR-PFIZER INC-2008016717

PATIENT
  Sex: Female
  Weight: 58 kg

DRUGS (3)
  1. TAHOR [Suspect]
     Indication: TYPE IIA HYPERLIPIDAEMIA
     Route: 048
     Dates: start: 20060719, end: 20060916
  2. COTAREG [Concomitant]
     Indication: HYPERTENSION
     Route: 048
  3. ZANIDIP [Concomitant]
     Indication: HYPERTENSION
     Route: 048

REACTIONS (4)
  - ARTHROPATHY [None]
  - BLOOD CREATINE PHOSPHOKINASE INCREASED [None]
  - LEUKOCYTOSIS [None]
  - PAIN IN EXTREMITY [None]
